FAERS Safety Report 13018954 (Version 1)
Quarter: 2016Q4

REPORT INFORMATION
  Report Type: Spontaneous
  Country: US (occurrence: US)
  Receive Date: 20161212
  Receipt Date: 20161212
  Transmission Date: 20170207
  Serious: Yes (Other)
  Sender: FDA-Public Use
  Company Number: US-PFIZER INC-2016566302

PATIENT
  Sex: Female

DRUGS (1)
  1. XELJANZ [Suspect]
     Active Substance: TOFACITINIB CITRATE
     Dosage: 5 MG

REACTIONS (18)
  - Eye symptom [Unknown]
  - Sjogren^s syndrome [Unknown]
  - Musculoskeletal disorder [Unknown]
  - Myalgia [Unknown]
  - Cough [Unknown]
  - Arthralgia [Unknown]
  - Joint swelling [Unknown]
  - Musculoskeletal stiffness [Unknown]
  - Gait disturbance [Unknown]
  - Muscular weakness [Unknown]
  - Rash [Unknown]
  - Fatigue [Unknown]
  - Weight decreased [Unknown]
  - Paraesthesia [Unknown]
  - Abdominal pain [Unknown]
  - Decreased appetite [Unknown]
  - Headache [Unknown]
  - Bronchitis [Unknown]
